FAERS Safety Report 9302967 (Version 2)
Quarter: 2013Q2

REPORT INFORMATION
  Report Type: Spontaneous
  Country: IT (occurrence: IT)
  Receive Date: 20130522
  Receipt Date: 20130531
  Transmission Date: 20140414
  Serious: Yes (Hospitalization)
  Sender: FDA-Public Use
  Company Number: IT-BRISTOL-MYERS SQUIBB COMPANY-18909796

PATIENT
  Age: 81 Year
  Sex: Female

DRUGS (12)
  1. COUMADIN TABS 5 MG [Suspect]
     Route: 048
  2. FUROSEMIDE [Concomitant]
     Route: 048
  3. AMIODARONE HCL [Concomitant]
     Route: 048
  4. RAMIPRIL [Concomitant]
     Route: 048
  5. BISOPROLOL HEMIFUMARATE [Concomitant]
     Route: 048
  6. TRIAZOLAM [Concomitant]
     Route: 048
  7. PANTOPRAZOLE SODIUM [Concomitant]
     Route: 048
  8. NOVORAPID [Concomitant]
  9. ZYLORIC [Concomitant]
     Dosage: 100 MG TAB
     Route: 048
  10. LEVEMIR [Concomitant]
  11. INSULIN [Concomitant]
  12. HALCION [Concomitant]

REACTIONS (2)
  - Anaemia [Unknown]
  - Thoracic vertebral fracture [Unknown]
